FAERS Safety Report 24985543 (Version 1)
Quarter: 2025Q1

REPORT INFORMATION
  Report Type: Spontaneous
  Country: ES (occurrence: ES)
  Receive Date: 20250219
  Receipt Date: 20250219
  Transmission Date: 20250408
  Serious: Yes (Other)
  Sender: ALEXION PHARMACEUTICALS
  Company Number: None

PATIENT
  Age: 64 Year

DRUGS (1)
  1. ROSUVASTATIN [Suspect]
     Active Substance: ROSUVASTATIN
     Indication: Product use in unapproved indication
     Dosage: UNK UNK, QD
     Route: 065

REACTIONS (4)
  - Lip oedema [Unknown]
  - Hypoaesthesia oral [Unknown]
  - Malaise [Unknown]
  - Dizziness [Unknown]
